FAERS Safety Report 21615113 (Version 5)
Quarter: 2023Q1

REPORT INFORMATION
  Report Type: Spontaneous
  Country: IT (occurrence: IT)
  Receive Date: 20221118
  Receipt Date: 20230105
  Transmission Date: 20230418
  Serious: Yes (Hospitalization, Other)
  Sender: FDA-Public Use
  Company Number: IT-009507513-2211ITA003574

PATIENT
  Age: 70 Year
  Sex: Male

DRUGS (3)
  1. CARBOPLATIN [Suspect]
     Active Substance: CARBOPLATIN
     Indication: Squamous cell carcinoma
     Dosage: UNK
     Dates: start: 202101
  2. PEMBROLIZUMAB [Suspect]
     Active Substance: PEMBROLIZUMAB
     Indication: Squamous cell carcinoma
     Dosage: UNK
     Dates: start: 202101
  3. FLUOROURACIL [Suspect]
     Active Substance: FLUOROURACIL
     Indication: Squamous cell carcinoma
     Dosage: UNK
     Dates: start: 202101

REACTIONS (6)
  - Epilepsy [Recovered/Resolved]
  - Petit mal epilepsy [Recovered/Resolved]
  - Tonic clonic movements [Recovered/Resolved]
  - Loss of consciousness [Recovered/Resolved]
  - Syncope [Unknown]
  - Neoplasm progression [Unknown]

NARRATIVE: CASE EVENT DATE: 20220101
